FAERS Safety Report 16669961 (Version 1)
Quarter: 2019Q3

REPORT INFORMATION
  Report Type: Report from Study
  Country: US (occurrence: US)
  Receive Date: 20190805
  Receipt Date: 20190805
  Transmission Date: 20191004
  Serious: Yes (Hospitalization)
  Sender: FDA-Public Use
  Company Number: US-ACTELION-A-NJ2018-169504

PATIENT
  Sex: Female
  Weight: 65.76 kg

DRUGS (4)
  1. VELETRI [Suspect]
     Active Substance: EPOPROSTENOL
     Indication: PULMONARY ARTERIAL HYPERTENSION
     Dosage: 26 NG/KG, PER MIN
     Route: 042
     Dates: start: 20100521, end: 201907
  2. XARELTO [Concomitant]
     Active Substance: RIVAROXABAN
  3. ADCIRCA [Concomitant]
     Active Substance: TADALAFIL
  4. REMODULIN [Concomitant]
     Active Substance: TREPROSTINIL
     Dosage: 26 NG/KG, PER MIN
     Route: 042

REACTIONS (10)
  - Therapy change [Unknown]
  - Dyspnoea [Unknown]
  - Dyspnoea exertional [Unknown]
  - Musculoskeletal pain [Unknown]
  - Pain in jaw [Unknown]
  - Neck pain [Unknown]
  - Fatigue [Unknown]
  - Rash [Unknown]
  - Device malfunction [Recovered/Resolved]
  - Arthralgia [Unknown]
